FAERS Safety Report 4277452-3 (Version None)
Quarter: 2004Q1

REPORT INFORMATION
  Report Type: 
  Country: None (occurrence: None)
  Receive Date: 20040122
  Receipt Date: 20031001
  Transmission Date: 20041129
  Serious: Yes (Hospitalization)
  Sender: FDA-Public Use
  Company Number: GB-ROCHE-348209

PATIENT
  Age: 48 Year
  Sex: Female
  Weight: 55 kg

DRUGS (12)
  1. CAPECITABINE [Suspect]
     Route: 048
  2. CAPECITABINE [Suspect]
     Route: 048
  3. GEMCITABINE [Suspect]
     Route: 042
  4. GEMCITABINE [Suspect]
     Route: 042
  5. MORPHINE SULFATE [Concomitant]
     Route: 048
  6. DOMPERIDONE [Concomitant]
     Route: 048
  7. TEMAZEPAM [Concomitant]
     Route: 048
  8. CELEBREX [Concomitant]
     Route: 048
  9. CLEXANE [Concomitant]
     Route: 048
  10. ORAMORPH SR [Concomitant]
     Route: 048
  11. DEXAMETHASONE [Concomitant]
     Route: 042
     Dates: start: 20030820, end: 20030820
  12. ONDANSETRON [Concomitant]
     Route: 042
     Dates: start: 20030730, end: 20030730

REACTIONS (4)
  - ASCITES [None]
  - CELLULITIS [None]
  - CONSTIPATION [None]
  - DEEP VEIN THROMBOSIS [None]
